FAERS Safety Report 8850303 (Version 1)
Quarter: 2012Q4

REPORT INFORMATION
  Report Type: 
  Country: US (occurrence: US)
  Receive Date: 20121019
  Receipt Date: 20121019
  Transmission Date: 20130627
  Serious: Yes (Hospitalization)
  Sender: FDA-Public Use
  Company Number: PHHY2012US092312

PATIENT
  Age: 57 Year
  Sex: Male

DRUGS (1)
  1. GLIBENCLAMIDE [Suspect]

REACTIONS (6)
  - Hypoglycaemia [Recovering/Resolving]
  - Mental status changes [Recovered/Resolved]
  - Unresponsive to stimuli [Recovering/Resolving]
  - Blood pressure increased [Recovered/Resolved]
  - Drug level increased [Recovered/Resolved]
  - Syncope [Recovered/Resolved]
